FAERS Safety Report 18755162 (Version 1)
Quarter: 2021Q1

REPORT INFORMATION
  Report Type: Spontaneous
  Country: US (occurrence: US)
  Receive Date: 20210115
  Receipt Date: 20210115
  Transmission Date: 20210419
  Serious: Yes (Other)
  Sender: FDA-Public Use
  Company Number: None

PATIENT
  Age: 29 Year
  Sex: Female
  Weight: 65.77 kg

DRUGS (1)
  1. ETHINYL ESTRADIOL?ETONOGESTREL VAGINAL RING [Suspect]
     Active Substance: ETHINYL ESTRADIOL\ETONOGESTREL
     Indication: CONTRACEPTION
     Dates: start: 20200301

REACTIONS (6)
  - Nausea [None]
  - Impaired work ability [None]
  - Loss of personal independence in daily activities [None]
  - Decreased appetite [None]
  - Migraine [None]
  - Product substitution issue [None]

NARRATIVE: CASE EVENT DATE: 20201228
